FAERS Safety Report 8042103 (Version 2)
Quarter: 2014Q2

REPORT INFORMATION
  Report Type: Spontaneous
  Country: US (occurrence: US)
  Receive Date: 20110718
  Receipt Date: 20140509
  Transmission Date: 20141212
  Serious: Yes (Death, Hospitalization)
  Sender: FDA-Public Use
  Company Number: US-GLAXOSMITHKLINE-A0805499A

PATIENT
  Age: 73 Year
  Sex: Male
  Weight: 159.1 kg

DRUGS (3)
  1. AVANDIA [Suspect]
     Indication: TYPE 2 DIABETES MELLITUS
     Dosage: 8MG PER DAY
     Route: 048
     Dates: start: 200111, end: 20060801
  2. INSULIN [Concomitant]
  3. GLYBURIDE [Concomitant]

REACTIONS (3)
  - Cardiac failure congestive [Fatal]
  - Cerebrovascular accident [Unknown]
  - Hypertensive cardiomyopathy [Unknown]
